FAERS Safety Report 9634068 (Version 1)
Quarter: 2013Q4

REPORT INFORMATION
  Report Type: Spontaneous
  Country: US (occurrence: US)
  Receive Date: 20131021
  Receipt Date: 20131021
  Transmission Date: 20140711
  Serious: No
  Sender: FDA-Public Use
  Company Number: US-009507513-1310USA008318

PATIENT
  Age: 1 Day
  Sex: Male
  Weight: 3.84 kg

DRUGS (18)
  1. SINGULAIR [Suspect]
     Indication: ASTHMA
     Dosage: 10 MG, QD
     Route: 064
     Dates: start: 2004
  2. SINGULAIR [Suspect]
     Indication: SINUS CONGESTION
  3. PROVENTIL [Suspect]
     Indication: ASTHMA
     Dosage: 1 - 2 PUFFS AS NEEDED, USED DURING WEEK 12 AND WEEK 20 OF GESTATION
     Route: 064
     Dates: start: 2003
  4. FLONASE [Suspect]
     Indication: SINUS CONGESTION
     Dosage: 1 SPRAY TWICE PER DAY
     Route: 064
     Dates: start: 2003, end: 20121215
  5. FLONASE [Suspect]
     Indication: SINUSITIS
     Dosage: 1 SPRAY TWICE PER DAY
     Route: 064
     Dates: start: 2003, end: 20121215
  6. FLOVENT [Suspect]
     Indication: ASTHMA
     Dosage: 220 MCG, 2 PUFFS TWICE PER DAY
     Route: 045
     Dates: start: 2008
  7. FLOVENT [Suspect]
     Dosage: 220 MCG, 2 PUFFS TWICE PER DAY
     Route: 064
     Dates: start: 2008
  8. KEPPRA [Suspect]
     Indication: EPILEPSY
     Dosage: 1500 MG, BID
     Route: 064
     Dates: start: 2000
  9. TRAZODONE HYDROCHLORIDE [Suspect]
     Indication: INSOMNIA
     Dosage: 100 MG, PRN
     Route: 064
     Dates: start: 2002
  10. PRISTIQ [Suspect]
     Indication: POST-TRAUMATIC STRESS DISORDER
     Dosage: 50 MG, DAILY
     Route: 064
     Dates: start: 2004
  11. BIAXIN [Suspect]
     Indication: BRONCHITIS
     Dosage: UNK
     Route: 064
     Dates: start: 20121201, end: 20121205
  12. SUDAFED [Suspect]
     Indication: SINUS CONGESTION
     Dosage: USED DURING WEEK 7 AND WEEK 13 OF GESTATION
     Route: 064
     Dates: start: 2010
  13. VITAMIN D (UNSPECIFIED) [Concomitant]
     Route: 064
  14. VITAMINS (UNSPECIFIED) [Concomitant]
     Route: 064
  15. FIORICET [Concomitant]
     Route: 064
  16. TEMAZEPAM [Concomitant]
     Route: 064
  17. AMOXICILLIN [Concomitant]
     Route: 064
  18. PREDNISONE [Concomitant]
     Route: 064

REACTIONS (2)
  - Pyrexia [Recovered/Resolved]
  - Foetal exposure during pregnancy [Recovered/Resolved]
